FAERS Safety Report 5979230-3 (Version None)
Quarter: 2008Q4

REPORT INFORMATION
  Report Type: 
  Country: None (occurrence: None)
  Receive Date: 20081204
  Receipt Date: 20081124
  Transmission Date: 20090506
  Serious: Yes (Other)
  Sender: FDA-Public Use
  Company Number: GB-JNJFOC-20081105800

PATIENT
  Age: 37 Year
  Sex: Female

DRUGS (4)
  1. TOPAMAX [Suspect]
     Indication: MIGRAINE PROPHYLAXIS
     Route: 048
  2. GLARGINE [Concomitant]
     Indication: DIABETES MELLITUS
  3. NOVORAPID [Concomitant]
     Indication: DIABETES MELLITUS
  4. AMYTRIPYLINE [Concomitant]
     Indication: DRUG USE FOR UNKNOWN INDICATION

REACTIONS (5)
  - HYPOGLYCAEMIA [None]
  - LOSS OF CONSCIOUSNESS [None]
  - RETINOPATHY [None]
  - VOMITING [None]
  - WEIGHT DECREASED [None]
